FAERS Safety Report 12540336 (Version 1)
Quarter: 2016Q3

REPORT INFORMATION
  Report Type: Spontaneous
  Country: US (occurrence: US)
  Receive Date: 20160708
  Receipt Date: 20160708
  Transmission Date: 20161109
  Serious: No
  Sender: FDA-Public Use
  Company Number: US-BEH-2016070433

PATIENT
  Sex: Female
  Weight: 86.17 kg

DRUGS (11)
  1. PROZAC [Concomitant]
     Active Substance: FLUOXETINE HYDROCHLORIDE
  2. MORPHINE SULF [Concomitant]
     Active Substance: MORPHINE SULFATE
  3. LIDOCAINE/PRILOCAINE [Concomitant]
     Active Substance: LIDOCAINE\PRILOCAINE
  4. ACETAMINOPHEN. [Concomitant]
     Active Substance: ACETAMINOPHEN
  5. HIZENTRA [Suspect]
     Active Substance: HUMAN IMMUNOGLOBULIN G
     Indication: IMMUNODEFICIENCY COMMON VARIABLE
     Dosage: 10 G, QW
     Route: 058
  6. METOPROLOL. [Concomitant]
     Active Substance: METOPROLOL
  7. DIPHENHYDRAMINE. [Concomitant]
     Active Substance: DIPHENHYDRAMINE
  8. COUMADIN [Concomitant]
     Active Substance: WARFARIN SODIUM
  9. EPIPEN [Concomitant]
     Active Substance: EPINEPHRINE
  10. KLONOPIN [Concomitant]
     Active Substance: CLONAZEPAM
  11. ASTELIN                            /00085801/ [Concomitant]
     Active Substance: AZELASTINE HYDROCHLORIDE

REACTIONS (1)
  - Sinusitis [Unknown]
